FAERS Safety Report 6772404-3 (Version None)
Quarter: 2010Q2

REPORT INFORMATION
  Report Type: 
  Country: None (occurrence: None)
  Receive Date: 20100616
  Receipt Date: 20090623
  Transmission Date: 20101027
  Serious: No
  Sender: FDA-Public Use
  Company Number: US-ASTRAZENECA-2009UW17172

PATIENT
  Age: 85 Year
  Sex: Female

DRUGS (3)
  1. PULMICORT RESPULESS [Suspect]
     Indication: EMPHYSEMA
     Route: 055
     Dates: start: 20080101
  2. COMBIVENT [Concomitant]
  3. BONIVA [Concomitant]

REACTIONS (1)
  - ALOPECIA [None]
